FAERS Safety Report 6680979-8 (Version None)
Quarter: 2010Q2

REPORT INFORMATION
  Report Type: 
  Country: None (occurrence: None)
  Receive Date: 20100414
  Receipt Date: 20100407
  Transmission Date: 20101027
  Serious: Yes (Other)
  Sender: FDA-Public Use
  Company Number: CHPA2010US06405

PATIENT
  Sex: Female

DRUGS (1)
  1. 1-DAY VAGINAL OINTMENT (NCH) [Suspect]
     Indication: VULVOVAGINAL MYCOTIC INFECTION
     Dosage: 300 MG, ONCE/SINGLE
     Route: 067
     Dates: start: 20100407, end: 20100407

REACTIONS (2)
  - FOREIGN BODY [None]
  - WRONG TECHNIQUE IN DRUG USAGE PROCESS [None]
